FAERS Safety Report 8353530-4 (Version None)
Quarter: 2012Q2

REPORT INFORMATION
  Report Type: 
  Country: None (occurrence: None)
  Receive Date: 20120511
  Receipt Date: 20110510
  Transmission Date: 20120825
  Serious: No
  Sender: FDA-Public Use
  Company Number: US-GLAXOSMITHKLINE-A0927578A

PATIENT
  Sex: Female

DRUGS (6)
  1. TYKERB [Suspect]
     Dosage: 750MG PER DAY
     Route: 048
     Dates: start: 20110505, end: 20110512
  2. MARINOL [Concomitant]
  3. VALTREX [Concomitant]
  4. ZOFRAN [Concomitant]
  5. TEMODAR [Concomitant]
  6. AVASTIN (SIMVASTATIN) [Concomitant]

REACTIONS (4)
  - DIARRHOEA [None]
  - ABDOMINAL PAIN [None]
  - MUSCLE SPASMS [None]
  - CONSTIPATION [None]
